FAERS Safety Report 19247782 (Version 3)
Quarter: 2021Q2

REPORT INFORMATION
  Report Type: Spontaneous
  Country: ES (occurrence: ES)
  Receive Date: 20210512
  Receipt Date: 20210630
  Transmission Date: 20210717
  Serious: Yes (Other)
  Sender: FDA-Public Use
  Company Number: ES-ALIMERA SCIENCES LIMITED-ES-A16013-21-000060

PATIENT

DRUGS (2)
  1. ILUVIEN [Suspect]
     Active Substance: FLUOCINOLONE ACETONIDE
     Indication: RETINAL OEDEMA
     Dosage: 0.25 MICROGRAM, QD?LEFT EYE
     Route: 031
     Dates: start: 20200311
  2. ILUVIEN [Suspect]
     Active Substance: FLUOCINOLONE ACETONIDE
     Dosage: 0.25 UNK?RIGHT EYE
     Route: 031
     Dates: start: 20201210

REACTIONS (4)
  - Device dislocation [Recovered/Resolved]
  - Vitrectomy [Recovered/Resolved]
  - Off label use [Unknown]
  - Device issue [Not Recovered/Not Resolved]

NARRATIVE: CASE EVENT DATE: 20200311
